FAERS Safety Report 14727293 (Version 1)
Quarter: 2018Q2

REPORT INFORMATION
  Report Type: Spontaneous
  Country: US (occurrence: US)
  Receive Date: 20180402
  Receipt Date: 20180402
  Transmission Date: 20180711
  Serious: Yes (Hospitalization)
  Sender: FDA-Public Use
  Company Number: None

PATIENT
  Sex: Female

DRUGS (7)
  1. ISOSORB MONO, METOPROL [Concomitant]
  2. PRAVASTATIN, LEVOTHYROXIN [Concomitant]
  3. CELLCEPT [Suspect]
     Active Substance: MYCOPHENOLATE MOFETIL\MYCOPHENOLATE MOFETIL HYDROCHLORIDE
     Indication: RENAL TRANSPLANT
     Route: 048
     Dates: start: 20130823
  4. CALCITRIOL, PREDNISONE [Concomitant]
  5. CYCLOSPORINE. [Suspect]
     Active Substance: CYCLOSPORINE
     Indication: RENAL TRANSPLANT
     Route: 048
     Dates: start: 20160321
  6. CEPHALEXIN, SMZ/TMP [Concomitant]
  7. POT CL MICRO, MAGNESIUM-OX [Concomitant]

REACTIONS (1)
  - Small intestinal obstruction [None]
